FAERS Safety Report 6556473-1 (Version None)
Quarter: 2010Q1

REPORT INFORMATION
  Report Type: 
  Country: None (occurrence: None)
  Receive Date: 20100128
  Receipt Date: 20100121
  Transmission Date: 20100710
  Serious: Yes (Death, Other)
  Sender: FDA-Public Use
  Company Number: DE-MERCK-1001DEU00073

PATIENT
  Age: 70 Year
  Sex: Male

DRUGS (1)
  1. JANUMET [Suspect]
     Route: 048
     Dates: start: 20090101, end: 20090101

REACTIONS (2)
  - LACTIC ACIDOSIS [None]
  - RENAL FAILURE [None]
